FAERS Safety Report 5238364-1 (Version None)
Quarter: 2007Q1

REPORT INFORMATION
  Report Type: 
  Country: None (occurrence: None)
  Receive Date: 20070212
  Receipt Date: 20070212
  Transmission Date: 20070707
  Serious: Yes (Other)
  Sender: FDA-Public Use
  Company Number: None

PATIENT
  Sex: Female

DRUGS (1)
  1. LISINOPRIL AND HYDROCHLOROTHIAZIDE [Suspect]
     Dosage: 20MG/12.5MG
     Dates: start: 20070124, end: 20070129

REACTIONS (2)
  - PHARMACEUTICAL PRODUCT COMPLAINT [None]
  - REACTION TO DRUG EXCIPIENTS [None]
